FAERS Safety Report 19019785 (Version 1)
Quarter: 2021Q1

REPORT INFORMATION
  Report Type: Spontaneous
  Country: US (occurrence: US)
  Receive Date: 20210316
  Receipt Date: 20210316
  Transmission Date: 20210420
  Serious: Yes (Other)
  Sender: FDA-Public Use
  Company Number: US-ROCHE-2789135

PATIENT
  Age: 44 Year
  Sex: Female

DRUGS (11)
  1. METOPROLOL SUCCINATE. [Concomitant]
     Active Substance: METOPROLOL SUCCINATE
  2. ACTEMRA [Suspect]
     Active Substance: TOCILIZUMAB
  3. DICLOFENAC [Concomitant]
     Active Substance: DICLOFENAC
  4. TOPIRAMATE. [Concomitant]
     Active Substance: TOPIRAMATE
  5. PROCHLORPERAZINE. [Concomitant]
     Active Substance: PROCHLORPERAZINE
  6. FAMOTIDINE. [Concomitant]
     Active Substance: FAMOTIDINE
  7. FOLIC ACID. [Concomitant]
     Active Substance: FOLIC ACID
  8. RINVOQ [Concomitant]
     Active Substance: UPADACITINIB
  9. ACTEMRA [Suspect]
     Active Substance: TOCILIZUMAB
     Indication: RHEUMATOID ARTHRITIS
     Route: 058
     Dates: start: 20201208, end: 20210310
  10. ESTRADIOL. [Concomitant]
     Active Substance: ESTRADIOL
  11. SUMATRIPTAN. [Concomitant]
     Active Substance: SUMATRIPTAN

REACTIONS (2)
  - Pain [Unknown]
  - Condition aggravated [Unknown]

NARRATIVE: CASE EVENT DATE: 20210112
